FAERS Safety Report 6399973-X (Version None)
Quarter: 2009Q4

REPORT INFORMATION
  Report Type: 
  Country: None (occurrence: None)
  Receive Date: 20091008
  Receipt Date: 20091008
  Transmission Date: 20100525
  Serious: Yes (Other)
  Sender: FDA-Public Use
  Company Number: None

PATIENT
  Age: 34 Year
  Sex: Female
  Weight: 66.2252 kg

DRUGS (1)
  1. TERCONAZOLE [Suspect]
     Indication: FUNGAL INFECTION
     Dosage: 0.8% 3 DAYS VAG
     Route: 067
     Dates: start: 20090930, end: 20091002

REACTIONS (3)
  - OROPHARYNGEAL PAIN [None]
  - PRURITUS [None]
  - RASH GENERALISED [None]
